FAERS Safety Report 23379398 (Version 2)
Quarter: 2024Q1

REPORT INFORMATION
  Report Type: Spontaneous
  Country: CN (occurrence: CN)
  Receive Date: 20240108
  Receipt Date: 20240131
  Transmission Date: 20240409
  Serious: Yes (Other)
  Sender: FDA-Public Use
  Company Number: CN-Merck Healthcare KGaA-2023497637

PATIENT
  Age: 70 Year
  Sex: Male
  Weight: 86 kg

DRUGS (15)
  1. ERBITUX [Suspect]
     Active Substance: CETUXIMAB
     Indication: Rectal cancer
     Dosage: 1000 MG, 2/M
     Route: 041
     Dates: start: 20230529
  2. INVESTIGATIONAL PRODUCT [Suspect]
     Active Substance: INVESTIGATIONAL PRODUCT
     Indication: Rectal cancer
     Dosage: 900 MG, OTHER
     Route: 048
     Dates: start: 20230312, end: 20230516
  3. INVESTIGATIONAL PRODUCT [Suspect]
     Active Substance: INVESTIGATIONAL PRODUCT
     Dosage: 600 MG, OTHER
     Route: 048
     Dates: start: 20230529, end: 20230607
  4. INVESTIGATIONAL PRODUCT [Suspect]
     Active Substance: INVESTIGATIONAL PRODUCT
     Dosage: 450 MG, OTHER
     Route: 048
     Dates: start: 20230907, end: 20230914
  5. INVESTIGATIONAL PRODUCT [Suspect]
     Active Substance: INVESTIGATIONAL PRODUCT
     Dosage: 300 MG, OTHER
     Route: 048
     Dates: start: 20231124, end: 20231204
  6. INVESTIGATIONAL PRODUCT [Suspect]
     Active Substance: INVESTIGATIONAL PRODUCT
     Dosage: 900 MG, OTHER
     Route: 048
     Dates: start: 20230225, end: 20230311
  7. HERBALS\DIAMMONIUM GLYCYRRHIZINATE [Concomitant]
     Active Substance: HERBALS\DIAMMONIUM GLYCYRRHIZINATE
     Indication: Alanine aminotransferase increased
     Dosage: 50 MG, OTHER
     Route: 048
     Dates: start: 20230509, end: 20230915
  8. HERBALS\DIAMMONIUM GLYCYRRHIZINATE [Concomitant]
     Active Substance: HERBALS\DIAMMONIUM GLYCYRRHIZINATE
     Indication: Aspartate aminotransferase increased
     Dosage: 150 MG, OTHER
     Route: 048
     Dates: start: 20231108, end: 20231222
  9. GLUTATHIONE [Concomitant]
     Active Substance: GLUTATHIONE
     Indication: Aspartate aminotransferase increased
     Dosage: 0.9 G, DAILY
     Route: 048
     Dates: start: 20230421, end: 20230428
  10. GLUTATHIONE [Concomitant]
     Active Substance: GLUTATHIONE
     Indication: Alanine aminotransferase increased
     Dosage: 0.1 G, OTHER
     Route: 048
     Dates: start: 20230509, end: 20230915
  11. SILIBININ [Concomitant]
     Active Substance: SILIBININ
     Indication: Liver disorder
     Dosage: .2 G, UNK
     Route: 048
     Dates: start: 20230916, end: 20231016
  12. MAGNESIUM ISOGLYCYRRHIZINATE [Concomitant]
     Active Substance: MAGNESIUM ISOGLYCYRRHIZINATE
     Indication: Product used for unknown indication
     Dosage: 0.9 G, DAILY
     Dates: start: 20230421, end: 20230428
  13. MAGNESIUM ISOGLYCYRRHIZINATE [Concomitant]
     Active Substance: MAGNESIUM ISOGLYCYRRHIZINATE
     Dosage: 40 ML, DAILY
     Route: 041
     Dates: start: 20230916, end: 20230920
  14. PHOSPHOLIPID [Concomitant]
     Active Substance: PHOSPHOLIPID
     Indication: Product used for unknown indication
     Dosage: 232.5 MG, UNK
     Dates: start: 20230421, end: 20230627
  15. PHOSPHOLIPID [Concomitant]
     Active Substance: PHOSPHOLIPID
     Dosage: 697.5 MG, DAILY
     Route: 041
     Dates: start: 20230916, end: 20230920

REACTIONS (4)
  - Malignant neoplasm progression [Unknown]
  - Aspartate aminotransferase increased [Recovered/Resolved]
  - Alanine aminotransferase increased [Recovered/Resolved]
  - Off label use [Unknown]

NARRATIVE: CASE EVENT DATE: 20230724
